FAERS Safety Report 5326262-4 (Version None)
Quarter: 2007Q2

REPORT INFORMATION
  Report Type: 
  Country: None (occurrence: None)
  Receive Date: 20070514
  Receipt Date: 20070514
  Transmission Date: 20071010
  Serious: No
  Sender: FDA-Public Use
  Company Number: None

PATIENT
  Age: 46 Year
  Sex: Female

DRUGS (7)
  1. PREGABALIN [Suspect]
     Dosage: 75 MG BID ORAL
     Route: 048
  2. ESCITALOPRAM OXALATE [Concomitant]
  3. OXYCODONE EXTENDED RELEASE [Concomitant]
  4. PROMETHAZINE [Concomitant]
  5. SUMATRIPTAN SUCCINATE [Concomitant]
  6. ACETAMINOPHEN AND CODEINE PHOSPHATE [Concomitant]
  7. LORAZEPAM [Concomitant]

REACTIONS (5)
  - HEPATITIS ACUTE [None]
  - INCORRECT DOSE ADMINISTERED [None]
  - MENTAL STATUS CHANGES [None]
  - MYOCLONUS [None]
  - RENAL FAILURE ACUTE [None]
